FAERS Safety Report 9974370 (Version 1)
Quarter: 2014Q1

REPORT INFORMATION
  Report Type: Report from Study
  Country: US (occurrence: US)
  Receive Date: 20140306
  Receipt Date: 20140306
  Transmission Date: 20141002
  Serious: No
  Sender: FDA-Public Use
  Company Number: US-ABBVIE-13P-163-1156196-00

PATIENT
  Age: 52 Year
  Sex: Male

DRUGS (5)
  1. HUMIRA [Suspect]
     Indication: RHEUMATOID ARTHRITIS
     Dates: start: 201308
  2. CRESTOR [Concomitant]
     Indication: BLOOD CHOLESTEROL INCREASED
     Dosage: DAILY
  3. DILANTIN [Concomitant]
     Indication: EPILEPSY
     Dosage: IN MORNING
  4. DILANTIN [Concomitant]
     Dosage: IN EVENING
  5. KEPPRA [Concomitant]
     Indication: EPILEPSY
     Dosage: 500 MG AM AND PM

REACTIONS (1)
  - Paraesthesia [Recovered/Resolved]
